FAERS Safety Report 14032512 (Version 3)
Quarter: 2018Q1

REPORT INFORMATION
  Report Type: Spontaneous
  Country: JP (occurrence: JP)
  Receive Date: 20171003
  Receipt Date: 20180226
  Transmission Date: 20180508
  Serious: Yes (Hospitalization, Other)
  Sender: FDA-Public Use
  Company Number: JP-009507513-1709JPN002780J

PATIENT
  Age: 83 Year
  Sex: Male
  Weight: 64 kg

DRUGS (3)
  1. URIEF [Concomitant]
     Active Substance: SILODOSIN
     Dosage: 4 MG, UNK
     Route: 048
     Dates: start: 2015
  2. KEYTRUDA [Suspect]
     Active Substance: PEMBROLIZUMAB
     Indication: LUNG SQUAMOUS CELL CARCINOMA STAGE IV
     Dosage: 200 MG, UNK
     Route: 041
     Dates: start: 20170815, end: 20170905
  3. URINORM [Concomitant]
     Active Substance: BENZBROMARONE
     Dosage: 25 MG, UNK
     Route: 048
     Dates: start: 2013

REACTIONS (4)
  - Vision blurred [Unknown]
  - Eyelid ptosis [Unknown]
  - Myasthenia gravis [Recovering/Resolving]
  - Myositis [Recovering/Resolving]

NARRATIVE: CASE EVENT DATE: 20170906
